FAERS Safety Report 10211353 (Version 1)
Quarter: 2014Q2

REPORT INFORMATION
  Report Type: Spontaneous
  Country: US (occurrence: None)
  Receive Date: 20140530
  Receipt Date: 20140530
  Transmission Date: 20141212
  Serious: Yes (Other)
  Sender: FDA-Public Use
  Company Number: None

PATIENT
  Age: 69 Year
  Sex: Male
  Weight: 88.45 kg

DRUGS (1)
  1. TRAMADOL [Suspect]
     Indication: PAIN
     Dosage: 1 TABLET, AS NEEDED, TAKEN BY MOUTH
     Route: 048
     Dates: start: 20140522, end: 20140523

REACTIONS (9)
  - Pain [None]
  - Anxiety [None]
  - Agitation [None]
  - Hyperhidrosis [None]
  - Alcohol use [None]
  - Nausea [None]
  - Vomiting [None]
  - Overdose [None]
  - Food interaction [None]
